FAERS Safety Report 25681087 (Version 2)
Quarter: 2025Q3

REPORT INFORMATION
  Report Type: Spontaneous
  Country: GB (occurrence: GB)
  Receive Date: 20250814
  Receipt Date: 20250819
  Transmission Date: 20251020
  Serious: No
  Sender: ABBVIE
  Company Number: GB-ABBVIE-6412139

PATIENT
  Sex: Female

DRUGS (1)
  1. GLECAPREVIR\PIBRENTASVIR [Suspect]
     Active Substance: GLECAPREVIR\PIBRENTASVIR
     Indication: Product used for unknown indication
     Route: 048

REACTIONS (18)
  - Premenstrual syndrome [Unknown]
  - Hormone level abnormal [Unknown]
  - Heavy menstrual bleeding [Unknown]
  - Bedridden [Unknown]
  - Brain fog [Unknown]
  - Confusional state [Unknown]
  - Arthralgia [Unknown]
  - Chills [Unknown]
  - Hot flush [Unknown]
  - Pain [Unknown]
  - Pain in extremity [Unknown]
  - Burning sensation [Unknown]
  - Feeling abnormal [Unknown]
  - Sensory disturbance [Unknown]
  - Feeling of despair [Unknown]
  - Apathy [Unknown]
  - Musculoskeletal stiffness [Unknown]
  - Panic reaction [Unknown]
